FAERS Safety Report 13797933 (Version 1)
Quarter: 2017Q3

REPORT INFORMATION
  Report Type: Spontaneous
  Country: US (occurrence: US)
  Receive Date: 20170727
  Receipt Date: 20170727
  Transmission Date: 20171127
  Serious: No
  Sender: FDA-Public Use
  Company Number: US-TEVA-731677ACC

PATIENT
  Sex: Female
  Weight: 79.9 kg

DRUGS (1)
  1. METOCLOPRAMIDE. [Suspect]
     Active Substance: METOCLOPRAMIDE
     Indication: GASTRIC DISORDER

REACTIONS (2)
  - Inappropriate schedule of drug administration [Unknown]
  - Hypertension [Unknown]
